FAERS Safety Report 5249956-8 (Version None)
Quarter: 2007Q1

REPORT INFORMATION
  Report Type: 
  Country: None (occurrence: None)
  Receive Date: 20070228
  Receipt Date: 20060110
  Transmission Date: 20070707
  Serious: No
  Sender: FDA-Public Use
  Company Number: US-GLAXOSMITHKLINE-A0588612A

PATIENT
  Age: 59 Year
  Sex: Female

DRUGS (8)
  1. LAMICTAL [Suspect]
     Indication: BIPOLAR DISORDER
     Dosage: 200MG TWICE PER DAY
     Route: 048
     Dates: end: 20060108
  2. RISPERDAL [Concomitant]
  3. LIPITOR [Concomitant]
  4. METFORMIN HCL [Concomitant]
  5. LOTENSIN [Concomitant]
  6. FELODIPINE [Concomitant]
  7. PREMPRO [Concomitant]
  8. HYDROCHLOROTHIAZIDE [Concomitant]

REACTIONS (2)
  - ECZEMA [None]
  - RASH [None]
